FAERS Safety Report 7386675-6 (Version None)
Quarter: 2011Q1

REPORT INFORMATION
  Report Type: 
  Country: None (occurrence: None)
  Receive Date: 20110331
  Receipt Date: 20110321
  Transmission Date: 20110831
  Serious: Yes (Death, Other)
  Sender: FDA-Public Use
  Company Number: US-TEVA-272904USA

PATIENT
  Sex: Female

DRUGS (2)
  1. METOCLOPRAMIDE [Suspect]
  2. METOCLOPRAMIDE [Suspect]

REACTIONS (13)
  - DYSTONIA [None]
  - DYSKINESIA [None]
  - PARKINSONISM [None]
  - RESTLESS LEGS SYNDROME [None]
  - TREMOR [None]
  - MOVEMENT DISORDER [None]
  - TARDIVE DYSKINESIA [None]
  - GRIMACING [None]
  - DYSPHAGIA [None]
  - CHOKING [None]
  - EXTRAPYRAMIDAL DISORDER [None]
  - ACTIVITIES OF DAILY LIVING IMPAIRED [None]
  - ALOPECIA [None]
